FAERS Safety Report 13194110 (Version 1)
Quarter: 2017Q1

REPORT INFORMATION
  Report Type: Spontaneous
  Country: US (occurrence: US)
  Receive Date: 20170207
  Receipt Date: 20170207
  Transmission Date: 20170428
  Serious: Yes (Other)
  Sender: FDA-Public Use
  Company Number: US-SHIRE-US201702012

PATIENT
  Sex: Female

DRUGS (5)
  1. EZOGABINE [Concomitant]
     Active Substance: EZOGABINE
     Indication: INFANTILE SPASMS
     Dosage: UNK, UNKNOWN
     Route: 065
  2. OXCARBAZEPINE. [Concomitant]
     Active Substance: OXCARBAZEPINE
     Indication: INFANTILE SPASMS
     Dosage: UNK, UNKNOWN
     Route: 065
  3. CLOBAZAM [Concomitant]
     Active Substance: CLOBAZAM
     Indication: INFANTILE SPASMS
     Dosage: UNK, UNKNOWN
     Route: 065
  4. LEVETIRACETAM. [Concomitant]
     Active Substance: LEVETIRACETAM
     Indication: INFANTILE SPASMS
     Dosage: UNK, UNKNOWN
  5. 433 (CARBAMAZEPINE) [Suspect]
     Active Substance: CARBAMAZEPINE
     Indication: INFANTILE SPASMS
     Dosage: UNK, UNKNOWN
     Route: 048

REACTIONS (3)
  - Developmental delay [Unknown]
  - Speech disorder [Unknown]
  - Movement disorder [Unknown]
